FAERS Safety Report 7148549-5 (Version None)
Quarter: 2010Q4

REPORT INFORMATION
  Report Type: 
  Country: None (occurrence: None)
  Receive Date: 20101209
  Receipt Date: 20101129
  Transmission Date: 20110411
  Serious: Yes (Other)
  Sender: FDA-Public Use
  Company Number: US-ENDO PHARMACEUTICALS INC.-OPER20100213

PATIENT
  Sex: Male

DRUGS (3)
  1. OPANA ER [Suspect]
     Indication: BACK PAIN
     Route: 048
     Dates: start: 20100501
  2. OPANA ER [Suspect]
     Route: 048
  3. OPANA ER [Suspect]
     Route: 048

REACTIONS (10)
  - DRUG EFFECT DECREASED [None]
  - DRUG INEFFECTIVE [None]
  - EYE IRRITATION [None]
  - GASTROOESOPHAGEAL REFLUX DISEASE [None]
  - HEADACHE [None]
  - HICCUPS [None]
  - INTENTIONAL DRUG MISUSE [None]
  - OCULAR HYPERAEMIA [None]
  - PRURITUS [None]
  - WITHDRAWAL SYNDROME [None]
